FAERS Safety Report 20374563 (Version 1)
Quarter: 2022Q1

REPORT INFORMATION
  Report Type: Spontaneous
  Country: US (occurrence: US)
  Receive Date: 20220125
  Receipt Date: 20220125
  Transmission Date: 20220423
  Serious: Yes (Other)
  Sender: FDA-Public Use
  Company Number: US-BRISTOL-MYERS SQUIBB COMPANY-BMS-2022-009153

PATIENT
  Age: 87 Year
  Sex: Female
  Weight: 96.145 kg

DRUGS (2)
  1. ORENCIA [Suspect]
     Active Substance: ABATACEPT
     Indication: Myalgia
     Dosage: 125 MILLIGRAM, QWK
     Route: 050
     Dates: start: 20211005
  2. PREDNISONE [Concomitant]
     Active Substance: PREDNISONE
     Indication: Myalgia
     Dosage: DOSE HAD BEEN LOWERED
     Route: 065

REACTIONS (3)
  - Pneumonia [Unknown]
  - Device malfunction [Unknown]
  - Intentional product use issue [Unknown]

NARRATIVE: CASE EVENT DATE: 20220104
